FAERS Safety Report 19607916 (Version 2)
Quarter: 2021Q3

REPORT INFORMATION
  Report Type: Spontaneous
  Country: EG (occurrence: EG)
  Receive Date: 20210726
  Receipt Date: 20210806
  Transmission Date: 20211014
  Serious: Yes (Hospitalization, Disabling, Other)
  Sender: FDA-Public Use
  Company Number: EG-NOVOPROD-829862

PATIENT
  Sex: Male
  Weight: 59 kg

DRUGS (6)
  1. MIXTARD 30 [Suspect]
     Active Substance: INSULIN HUMAN
     Dosage: 25?20 IU MORNING ? 10?15 IU NIGHT
     Route: 058
  2. LANTUS [Concomitant]
     Active Substance: INSULIN GLARGINE
     Indication: DIABETES MELLITUS
     Dosage: STARTED IT FROM 1 MONTH , 14?15 IU NIGHT
     Route: 058
  3. MILGA [Concomitant]
     Active Substance: BENFOTIAMINE\CYANOCOBALAMIN\PYRIDOXINE HYDROCHLORIDE
     Indication: VITAMIN SUPPLEMENTATION
     Dosage: STARTED IT 2 MONTHS AGO , 1 TAB MORNING
     Route: 048
  4. ASPIRIN [ACETYLSALICYLIC ACID] [Concomitant]
     Active Substance: ASPIRIN
     Indication: ANTICOAGULANT THERAPY
     Dosage: STARTED IT 2 MONTHS AGO ? 1 TAB AFTER LUNCH
     Route: 048
  5. MIXTARD 30 [Suspect]
     Active Substance: INSULIN HUMAN
     Indication: DIABETES MELLITUS
     Dosage: UNK
     Route: 058
  6. HEMACAP [Concomitant]
     Indication: ANAEMIA
     Dosage: STARTED IT 1 MONTH AGO , 1 CAP AFTER LUNCH
     Route: 048

REACTIONS (4)
  - Toe amputation [Recovered/Resolved]
  - Blood glucose increased [Unknown]
  - Hypoglycaemia [Unknown]
  - Treatment noncompliance [Unknown]
